FAERS Safety Report 10213131 (Version 1)
Quarter: 2014Q2

REPORT INFORMATION
  Report Type: Spontaneous
  Country: US (occurrence: US)
  Receive Date: 20140603
  Receipt Date: 20140603
  Transmission Date: 20141212
  Serious: No
  Sender: FDA-Public Use
  Company Number: US-009507513-1406USA000920

PATIENT
  Sex: Female

DRUGS (2)
  1. ZETIA [Suspect]
     Dosage: 10 MG, QD
     Route: 048
     Dates: start: 201403
  2. ATORVASTATIN [Suspect]
     Dosage: 40 MG, QD

REACTIONS (2)
  - Abdominal discomfort [Unknown]
  - Medication error [Unknown]
